FAERS Safety Report 4554482-5 (Version None)
Quarter: 2004Q4

REPORT INFORMATION
  Report Type: 
  Country: None (occurrence: None)
  Receive Date: 20041223
  Receipt Date: 20040607
  Transmission Date: 20050328
  Serious: Yes (Hospitalization)
  Sender: FDA-Public Use
  Company Number: PHEH2004US06111

PATIENT
  Age: 31 Year
  Sex: Female

DRUGS (8)
  1. CYTADREN [Suspect]
     Indication: PITUITARY-DEPENDENT CUSHING'S SYNDROME
     Dosage: 250 MG/QAM + 500 MG/QHS, ORAL
     Route: 048
     Dates: start: 20030801, end: 20031201
  2. KETOCONAZOLE [Concomitant]
  3. SPIRONOLACTONE [Concomitant]
  4. ADO-DESMOPRESSIN (DESMOPRESSIN ACETATE) [Concomitant]
  5. METFORMIN HCL [Concomitant]
  6. LEXAPRO [Concomitant]
  7. ZYRTEK (CETIRIZINE HYDROCHLORIDE) [Concomitant]
  8. TYLENOL [Concomitant]

REACTIONS (8)
  - CHEST X-RAY ABNORMAL [None]
  - COMPUTERISED TOMOGRAM ABNORMAL [None]
  - EOSINOPHILIA [None]
  - EOSINOPHILIC PNEUMONIA ACUTE [None]
  - PYREXIA [None]
  - RED BLOOD CELL SEDIMENTATION RATE INCREASED [None]
  - RESTRICTIVE PULMONARY DISEASE [None]
  - WHITE BLOOD CELL COUNT INCREASED [None]
